FAERS Safety Report 10542480 (Version 2)
Quarter: 2014Q4

REPORT INFORMATION
  Report Type: Spontaneous
  Country: IT (occurrence: IT)
  Receive Date: 20141027
  Receipt Date: 20141027
  Transmission Date: 20150529
  Serious: Yes (Other)
  Sender: FDA-Public Use
  Company Number: IT-ROCHE-1141755

PATIENT
  Age: 79 Year
  Sex: Female

DRUGS (5)
  1. VEMURAFENIB [Suspect]
     Active Substance: VEMURAFENIB
     Indication: MALIGNANT MELANOMA
     Route: 048
     Dates: start: 20120704, end: 20120816
  2. NITRENDIPINA [Concomitant]
     Indication: HYPERTENSION
     Route: 048
  3. VEMURAFENIB [Suspect]
     Active Substance: VEMURAFENIB
     Dosage: RE-INTRODUCED
     Route: 048
  4. HYDROMORPHONE [Concomitant]
     Active Substance: HYDROMORPHONE
     Indication: PAIN
     Route: 048
  5. NEBIVOLOLO CLORIDRATO [Concomitant]
     Indication: HYPERTENSION
     Route: 048

REACTIONS (2)
  - Skin toxicity [Recovered/Resolved with Sequelae]
  - Blood creatine increased [Not Recovered/Not Resolved]

NARRATIVE: CASE EVENT DATE: 20120816
